FAERS Safety Report 4741882-3 (Version None)
Quarter: 2005Q3

REPORT INFORMATION
  Report Type: 
  Country: None (occurrence: None)
  Receive Date: 20050801
  Receipt Date: 20050617
  Transmission Date: 20060218
  Serious: No
  Sender: FDA-Public Use
  Company Number: 2005PV000082

PATIENT
  Age: 78 Year
  Sex: Male
  Weight: 78.9259 kg

DRUGS (12)
  1. BYETTA [Suspect]
     Indication: DIABETES MELLITUS NON-INSULIN-DEPENDENT
     Dosage: 5 UG;UNKNOWN;SC
     Route: 058
     Dates: start: 20050617
  2. CARDIA XT [Concomitant]
  3. ISOSORBIDE [Concomitant]
  4. PLAVIX [Concomitant]
  5. GLIPIZIDE [Concomitant]
  6. PROSCAR [Concomitant]
  7. FLOMAX [Concomitant]
  8. NEXIUM [Concomitant]
  9. LIPITOR [Concomitant]
  10. PROCRIT [Concomitant]
  11. STEROID [Concomitant]
  12. AVANDIA [Concomitant]

REACTIONS (1)
  - DYSGEUSIA [None]
